FAERS Safety Report 7422257-5 (Version None)
Quarter: 2011Q2

REPORT INFORMATION
  Report Type: 
  Country: None (occurrence: None)
  Receive Date: 20110419
  Receipt Date: 20110404
  Transmission Date: 20111010
  Serious: Yes (Other)
  Sender: FDA-Public Use
  Company Number: DE-RANBAXY-2010RR-39677

PATIENT
  Sex: Male

DRUGS (14)
  1. PAROXETINE [Suspect]
     Dosage: 40 MG, UNK
  2. OPIPRAMOL [Suspect]
     Dosage: 150 MG, UNK
  3. MIRTAZAPINE [Suspect]
     Dosage: 30 MG, UNK
  4. AMITRIPTYLINOXIDE [Suspect]
     Dosage: 180 MG, UNK
  5. TRANYLCYPROMINE SULFATE [Concomitant]
     Dosage: 30 MG, UNK
  6. SERTRALINE [Suspect]
     Dosage: 200 MG, UNK
  7. AMITRIPTYLINE [Suspect]
     Dosage: 75 MG, UNK
  8. VENLAFAXINE HCL [Suspect]
     Dosage: 37.5 MG, UNK
  9. BUPROPION [Suspect]
     Dosage: 150 MG, UNK
  10. REBOXETINE [Suspect]
     Dosage: 8 MG, UNK
  11. CLOMIPRAMINE [Suspect]
     Dosage: 75 MG, UNK
  12. DULOXETINE [Suspect]
     Dosage: 60 MG, UNK
  13. IMIPRAMINE [Suspect]
     Dosage: 75 MG, UNK
  14. MOCLOBEMIDE [Suspect]
     Dosage: 600 MG, UNK

REACTIONS (11)
  - HYPERHIDROSIS [None]
  - VISUAL IMPAIRMENT [None]
  - FATIGUE [None]
  - VERTIGO [None]
  - DRY MOUTH [None]
  - SLEEP DISORDER [None]
  - SEDATION [None]
  - DRUG INEFFECTIVE [None]
  - HEADACHE [None]
  - SEXUAL DYSFUNCTION [None]
  - WEIGHT INCREASED [None]
